FAERS Safety Report 14611851 (Version 5)
Quarter: 2018Q4

REPORT INFORMATION
  Report Type: Report from Study
  Country: GR (occurrence: GR)
  Receive Date: 20180308
  Receipt Date: 20181105
  Transmission Date: 20190204
  Serious: Yes (Hospitalization)
  Sender: FDA-Public Use
  Company Number: GR-ROCHE-2080031

PATIENT
  Age: 62 Year
  Sex: Female
  Weight: 72 kg

DRUGS (5)
  1. CALVIDIN [Concomitant]
     Indication: OSTEOPENIA
     Route: 065
     Dates: end: 20180621
  2. VEMURAFENIB. [Suspect]
     Active Substance: VEMURAFENIB
     Indication: MALIGNANT MELANOMA STAGE IV
     Dosage: RUN IN PERIOD DAY 1?14/FEB/2018, MOST RECENT DOSE OF VEMURAFENIB 8 TABLETS
     Route: 048
     Dates: start: 20180205
  3. COBIMETINIB. [Suspect]
     Active Substance: COBIMETINIB
     Indication: MALIGNANT MELANOMA STAGE IV
     Dosage: RUN IN PERIOD DAY 1?14/FEB/2018, MOST RECENT DOSE OF COBIMETINIB 60 MG
     Route: 048
     Dates: start: 20180205, end: 20180214
  4. COMPLEX B [Concomitant]
     Active Substance: CALCIUM PANTOTHENATE\CYANOCOBALAMIN\NIACINAMIDE\PYRIDOXINE HYDROCHLORIDE\RIBOFLAVIN\THIAMINE MONONITRATE
     Indication: OSTEOPENIA
     Route: 065
     Dates: end: 20180621
  5. LEVOTHYROXINE. [Concomitant]
     Active Substance: LEVOTHYROXINE
     Indication: AUTOIMMUNE THYROIDITIS
     Route: 065
     Dates: end: 20180621

REACTIONS (1)
  - Purpura [Recovered/Resolved]

NARRATIVE: CASE EVENT DATE: 20180216
